FAERS Safety Report 16840721 (Version 1)
Quarter: 2019Q3

REPORT INFORMATION
  Report Type: Spontaneous
  Country: IT (occurrence: IT)
  Receive Date: 20190923
  Receipt Date: 20190923
  Transmission Date: 20191005
  Serious: Yes (Other)
  Sender: FDA-Public Use
  Company Number: IT-JNJFOC-20190830429

PATIENT
  Age: 44 Year
  Sex: Male

DRUGS (2)
  1. DIBASE [Concomitant]
     Active Substance: CHOLECALCIFEROL
     Route: 065
  2. STELARA [Suspect]
     Active Substance: USTEKINUMAB
     Indication: CROHN^S DISEASE
     Dosage: CYCLICAL
     Route: 042

REACTIONS (2)
  - Hypertension [Recovered/Resolved with Sequelae]
  - Conjunctivitis viral [Recovered/Resolved with Sequelae]

NARRATIVE: CASE EVENT DATE: 20190530
